FAERS Safety Report 4753983-4 (Version None)
Quarter: 2005Q3

REPORT INFORMATION
  Report Type: 
  Country: None (occurrence: None)
  Receive Date: 20050826
  Receipt Date: 20050815
  Transmission Date: 20060218
  Serious: Yes (Hospitalization, Other)
  Sender: FDA-Public Use
  Company Number: 2005077258

PATIENT
  Age: 49 Year
  Sex: Female
  Weight: 107.0489 kg

DRUGS (21)
  1. CELEBREX [Suspect]
     Indication: BACK PAIN
     Dosage: 200 MG (200 MG, 1 IN 1 D), ORAL
     Route: 048
     Dates: start: 19990101, end: 19990101
  2. BEXTRA [Suspect]
     Indication: ARTHRALGIA
     Dosage: 20 MG (20 MG, 1 IN 1 D), ORAL
     Route: 048
  3. BENADRYL [Suspect]
     Indication: PRURITUS
     Dosage: ORAL
     Route: 048
     Dates: start: 19990101
  4. MOTRIN [Suspect]
     Indication: BACK PAIN
     Dosage: 800 MG (800 MG, 1 IN 1 D), ORAL
     Route: 048
     Dates: start: 20050601
  5. ADVIL [Suspect]
     Indication: BACK PAIN
     Dosage: ORAL
     Route: 048
  6. OXYCONTIN [Suspect]
     Indication: BACK PAIN
     Dosage: ORAL
     Route: 048
  7. ALL OTHER THERAPEUTIC PRODUCTS (ALL OTHER THERAPEUTIC PRODUCTS) [Concomitant]
  8. PRILOSEC [Concomitant]
  9. TRAZODONE HCL [Concomitant]
  10. ALTACE [Concomitant]
  11. NORVASC [Concomitant]
  12. ZOCOR [Concomitant]
  13. ZETIA [Concomitant]
  14. CELEXA [Concomitant]
  15. STRATTERA [Concomitant]
  16. NEXIUM [Concomitant]
  17. AMBIEM (ZOLPIDEM TARTRATE) [Concomitant]
  18. TOPROL (METOPROLOL) [Concomitant]
  19. ZEBETA [Concomitant]
  20. VICODIN [Concomitant]
  21. ZANAFLEX [Concomitant]

REACTIONS (18)
  - ARTHRALGIA [None]
  - BLOOD CHOLESTEROL INCREASED [None]
  - COMA [None]
  - DEEP VEIN THROMBOSIS [None]
  - DEPRESSION [None]
  - DIFFICULTY IN WALKING [None]
  - DRUG HYPERSENSITIVITY [None]
  - DRUG INEFFECTIVE [None]
  - FATIGUE [None]
  - GASTRITIS [None]
  - IMMOBILE [None]
  - OESOPHAGITIS [None]
  - PERFORMANCE STATUS DECREASED [None]
  - PROCEDURAL PAIN [None]
  - SKIN HAEMORRHAGE [None]
  - SPEECH DISORDER [None]
  - TREATMENT NONCOMPLIANCE [None]
  - ULCER [None]
